FAERS Safety Report 17464740 (Version 1)
Quarter: 2020Q1

REPORT INFORMATION
  Report Type: Spontaneous
  Country: US (occurrence: US)
  Receive Date: 20200226
  Receipt Date: 20200226
  Transmission Date: 20200409
  Serious: No
  Sender: FDA-Public Use
  Company Number: US-ROCHE-2412808

PATIENT
  Sex: Female

DRUGS (1)
  1. ALECENSA [Suspect]
     Active Substance: ALECTINIB HYDROCHLORIDE
     Indication: LUNG NEOPLASM MALIGNANT
     Dosage: ONGOING: YES
     Route: 048
     Dates: start: 20190821

REACTIONS (7)
  - Fatigue [Unknown]
  - Weight increased [Unknown]
  - Insomnia [Unknown]
  - Abdominal distension [Unknown]
  - Taste disorder [Unknown]
  - Constipation [Unknown]
  - Swelling [Unknown]
